FAERS Safety Report 15862244 (Version 1)
Quarter: 2019Q1

REPORT INFORMATION
  Report Type: Spontaneous
  Country: JP (occurrence: JP)
  Receive Date: 20190124
  Receipt Date: 20190124
  Transmission Date: 20190417
  Serious: Yes (Other)
  Sender: FDA-Public Use
  Company Number: JP-ABBVIE-19S-087-2609981-00

PATIENT

DRUGS (10)
  1. LANIRAPID [Concomitant]
     Active Substance: METILDIGOXIN
     Dosage: 0.05 MILLIGRAM, QD
     Route: 048
     Dates: start: 20160108
  2. TRANEXAMIC ACID. [Concomitant]
     Active Substance: TRANEXAMIC ACID
     Indication: HAEMATURIA
     Route: 048
     Dates: start: 20150622
  3. CIMETIDINE [Concomitant]
     Active Substance: CIMETIDINE
     Indication: PRODUCT USED FOR UNKNOWN INDICATION
     Route: 048
     Dates: start: 20120817
  4. URSO [Concomitant]
     Active Substance: URSODIOL
     Indication: PRODUCT USED FOR UNKNOWN INDICATION
     Route: 048
     Dates: start: 20150811
  5. ELIQUIS [Concomitant]
     Active Substance: APIXABAN
     Indication: PRODUCT USED FOR UNKNOWN INDICATION
     Route: 048
     Dates: start: 20170807
  6. WARFARIN [Concomitant]
     Active Substance: WARFARIN
     Indication: PRODUCT USED FOR UNKNOWN INDICATION
     Route: 048
     Dates: start: 20120817, end: 20170807
  7. CRESTOR [Concomitant]
     Active Substance: ROSUVASTATIN CALCIUM
     Indication: PRODUCT USED FOR UNKNOWN INDICATION
     Dosage: 5 MILLIGRAM, QD
     Route: 048
  8. LIPACREON [Suspect]
     Active Substance: PANCRELIPASE
     Indication: BILE DUCT CANCER
     Route: 048
     Dates: start: 20150811, end: 201809
  9. LANIRAPID [Concomitant]
     Active Substance: METILDIGOXIN
     Indication: PALPITATIONS
     Route: 048
     Dates: start: 20150814
  10. PARIET [Suspect]
     Active Substance: RABEPRAZOLE SODIUM
     Indication: BILE DUCT CANCER
     Route: 048
     Dates: start: 20150811, end: 201809

REACTIONS (2)
  - Urticaria [Recovering/Resolving]
  - Pruritus generalised [Not Recovered/Not Resolved]

NARRATIVE: CASE EVENT DATE: 20180627
